FAERS Safety Report 5527739-9 (Version None)
Quarter: 2007Q4

REPORT INFORMATION
  Report Type: 
  Country: None (occurrence: None)
  Receive Date: 20071128
  Receipt Date: 20071114
  Transmission Date: 20080405
  Serious: Yes (Hospitalization)
  Sender: FDA-Public Use
  Company Number: JP-ELI_LILLY_AND_COMPANY-JP200711004903

PATIENT
  Age: 67 Year
  Sex: Female

DRUGS (1)
  1. HUMULIN R [Suspect]
     Dosage: 150 D/F, UNK
     Route: 058

REACTIONS (5)
  - CEREBRAL ATROPHY [None]
  - HYPOGLYCAEMIC COMA [None]
  - HYPOGLYCAEMIC ENCEPHALOPATHY [None]
  - INTENTIONAL OVERDOSE [None]
  - SUICIDE ATTEMPT [None]
